FAERS Safety Report 12206977 (Version 1)
Quarter: 2016Q1

REPORT INFORMATION
  Report Type: Spontaneous
  Country: FR (occurrence: FR)
  Receive Date: 20160324
  Receipt Date: 20160324
  Transmission Date: 20160526
  Serious: Yes (Death)
  Sender: FDA-Public Use
  Company Number: FR-BAYER-2016-051223

PATIENT
  Age: 82 Year
  Sex: Male

DRUGS (3)
  1. PREVISCAN [Suspect]
     Active Substance: FLUINDIONE
     Indication: ATRIAL FIBRILLATION
     Dosage: UNK
     Route: 048
     Dates: start: 201502, end: 20160127
  2. BI PROFENID [Concomitant]
     Active Substance: KETOPROFEN
  3. STIVARGA [Suspect]
     Active Substance: REGORAFENIB
     Indication: ADENOCARCINOMA OF COLON
     Dosage: 120 MG, QD IN THE MORNING DURING 21 DAYS PER MONTH
     Route: 048
     Dates: start: 20151130, end: 20160127

REACTIONS (2)
  - International normalised ratio increased [Fatal]
  - Cerebral haemorrhage [Fatal]

NARRATIVE: CASE EVENT DATE: 20160127
